FAERS Safety Report 25059360 (Version 1)
Quarter: 2025Q1

REPORT INFORMATION
  Report Type: Spontaneous
  Country: US (occurrence: None)
  Receive Date: 20250308
  Receipt Date: 20250308
  Transmission Date: 20250409
  Serious: Yes (Other)
  Sender: FDA-CTU
  Company Number: None

PATIENT
  Age: 71 Year
  Sex: Male
  Weight: 81 kg

DRUGS (5)
  1. REPATHA [Suspect]
     Active Substance: EVOLOCUMAB
     Indication: Low density lipoprotein increased
     Route: 058
     Dates: start: 20250101, end: 20250115
  2. AVODART [Concomitant]
     Active Substance: DUTASTERIDE
  3. TESTOSTERONE [Concomitant]
     Active Substance: TESTOSTERONE
  4. NP THYROID [Concomitant]
     Active Substance: LEVOTHYROXINE\LIOTHYRONINE
  5. CIALIS [Concomitant]
     Active Substance: TADALAFIL

REACTIONS (3)
  - Arthralgia [None]
  - Joint effusion [None]
  - Post procedural complication [None]

NARRATIVE: CASE EVENT DATE: 20250115
